FAERS Safety Report 9025340 (Version 1)
Quarter: 2012Q4

REPORT INFORMATION
  Report Type: 
  Country: MX (occurrence: MX)
  Receive Date: 20121211
  Receipt Date: 20121211
  Transmission Date: 20130627
  Serious: Yes (Hospitalization)
  Sender: FDA-Public Use
  Company Number: PHHY2012MX113455

PATIENT
  Age: 78 Year
  Sex: Female

DRUGS (4)
  1. RASILEZ [Suspect]
     Indication: RENAL DISORDER
     Dosage: 0.5 DFdaily
     Route: 048
     Dates: start: 2009
  2. CINARIZINE [Concomitant]
     Indication: CARDIOVASCULAR INSUFFICIENCY
     Dosage: 1 DF daily
     Dates: start: 2011
  3. CALCORA [Concomitant]
     Indication: HYPOGLYCAEMIA
     Dosage: 0.25 DF daily
     Route: 048
     Dates: start: 2009
  4. FOLIC ACID [Concomitant]
     Indication: ANAEMIA
     Dosage: 1 DF,daily
     Route: 048
     Dates: start: 2002

REACTIONS (8)
  - Intestinal obstruction [Recovered/Resolved]
  - Abdominal pain upper [Recovered/Resolved]
  - Nausea [Recovered/Resolved]
  - Vomiting [Recovered/Resolved]
  - Wrong technique in drug usage process [Unknown]
  - Blood uric acid increased [Unknown]
  - Blood cholesterol increased [Unknown]
  - Blood triglycerides increased [Unknown]
